FAERS Safety Report 5661705-8 (Version None)
Quarter: 2008Q1

REPORT INFORMATION
  Report Type: 
  Country: None (occurrence: None)
  Receive Date: 20080312
  Receipt Date: 20080307
  Transmission Date: 20080703
  Serious: Yes (Hospitalization)
  Sender: FDA-Public Use
  Company Number: A0714775A

PATIENT
  Age: 45 Year
  Sex: Female

DRUGS (9)
  1. COMPAZINE [Suspect]
     Indication: DRUG USE FOR UNKNOWN INDICATION
     Route: 048
  2. MS CONTIN [Suspect]
     Indication: DRUG USE FOR UNKNOWN INDICATION
     Route: 048
  3. BACTRIM DS [Suspect]
     Indication: DRUG USE FOR UNKNOWN INDICATION
     Route: 048
  4. SUNITINIB MALATE [Suspect]
     Indication: BREAST CANCER
     Dosage: 37.5MG PER DAY
     Route: 048
     Dates: start: 20071031
  5. PACLITAXEL [Suspect]
     Indication: BREAST CANCER
     Dosage: 130MGM2 WEEKLY
     Route: 042
     Dates: start: 20071031
  6. PROTONIX [Suspect]
     Indication: DRUG USE FOR UNKNOWN INDICATION
     Route: 048
     Dates: start: 20080130
  7. LORTAB [Suspect]
     Indication: DRUG USE FOR UNKNOWN INDICATION
     Route: 048
     Dates: start: 20071010
  8. PREDNISOLONE [Concomitant]
     Dates: start: 20071220, end: 20071221
  9. DIPHENHYDRAMINE HCL [Concomitant]
     Dates: start: 20071220, end: 20071221

REACTIONS (4)
  - CHEST PAIN [None]
  - DIARRHOEA [None]
  - DYSPNOEA [None]
  - NAUSEA [None]
